FAERS Safety Report 22205553 (Version 2)
Quarter: 2024Q4

REPORT INFORMATION
  Report Type: Report from Study
  Country: JP (occurrence: JP)
  Receive Date: 20230413
  Receipt Date: 20241217
  Transmission Date: 20250115
  Serious: Yes (Hospitalization, Other)
  Sender: ASTELLAS
  Company Number: JP-ASTELLAS-2023JP003552

PATIENT
  Age: 52 Year
  Sex: Female

DRUGS (3)
  1. SOLIFENACIN [Suspect]
     Active Substance: SOLIFENACIN
     Indication: Hypertonic bladder
     Dosage: 22:00
     Route: 048
  2. FENTANYL [Concomitant]
     Active Substance: FENTANYL
     Indication: Product used for unknown indication
     Route: 042
  3. FENTANYL [Concomitant]
     Active Substance: FENTANYL
     Route: 042

REACTIONS (5)
  - Restlessness [Recovering/Resolving]
  - Abnormal behaviour [Recovering/Resolving]
  - Psychiatric symptom [Recovering/Resolving]
  - Drug level increased [Unknown]
  - Delirium [Recovering/Resolving]
